FAERS Safety Report 4824747-8 (Version None)
Quarter: 2005Q4

REPORT INFORMATION
  Report Type: 
  Country: None (occurrence: None)
  Receive Date: 20051110
  Receipt Date: 20051101
  Transmission Date: 20060501
  Serious: Yes (Hospitalization)
  Sender: FDA-Public Use
  Company Number: 2005AP05636

PATIENT
  Age: 28 Year
  Sex: Female

DRUGS (3)
  1. ENTOCORT CAPSULE [Suspect]
     Indication: COLITIS ULCERATIVE
     Route: 048
  2. MESALAMINE [Interacting]
     Indication: COLITIS ULCERATIVE
  3. SULFASALAZINE [Concomitant]
     Indication: COLITIS ULCERATIVE

REACTIONS (4)
  - DRUG INTERACTION [None]
  - PYREXIA [None]
  - RASH [None]
  - URTICARIA [None]
